FAERS Safety Report 17837464 (Version 1)
Quarter: 2020Q2

REPORT INFORMATION
  Report Type: Report from Study
  Country: KR (occurrence: KR)
  Receive Date: 20200528
  Receipt Date: 20200528
  Transmission Date: 20200714
  Serious: Yes (Other)
  Sender: FDA-Public Use
  Company Number: KR-EISAI MEDICAL RESEARCH-EC-2019-054631

PATIENT
  Age: 17 Year
  Sex: Female
  Weight: 69 kg

DRUGS (6)
  1. TOPAMAX [Concomitant]
     Active Substance: TOPIRAMATE
  2. FYCOMPA [Suspect]
     Active Substance: PERAMPANEL
     Indication: SEIZURE
     Route: 048
     Dates: start: 20161024, end: 20170320
  3. TRILEPTAL [Concomitant]
     Active Substance: OXCARBAZEPINE
  4. SENTIL [Concomitant]
     Active Substance: CLOBAZAM
  5. SABRIL [Concomitant]
     Active Substance: VIGABATRIN
  6. LAMICTAL [Concomitant]
     Active Substance: LAMOTRIGINE

REACTIONS (1)
  - Aggression [Recovered/Resolved]

NARRATIVE: CASE EVENT DATE: 201701
